FAERS Safety Report 22150680 (Version 1)
Quarter: 2023Q1

REPORT INFORMATION
  Report Type: Spontaneous
  Country: FR (occurrence: FR)
  Receive Date: 20230329
  Receipt Date: 20230329
  Transmission Date: 20230418
  Serious: Yes (Life-Threatening)
  Sender: FDA-Public Use
  Company Number: FR-MYLANLABS-2023M1021442

PATIENT
  Age: 79 Year
  Sex: Male

DRUGS (1)
  1. FORMOTEROL [Suspect]
     Active Substance: FORMOTEROL
     Indication: Asthma
     Dosage: 12 MICROGRAM, BID (ONE CAPSULE TWICE A DAY)
     Route: 055
     Dates: start: 20230209

REACTIONS (2)
  - Drug dose omission by device [Not Recovered/Not Resolved]
  - Product quality issue [Unknown]

NARRATIVE: CASE EVENT DATE: 20230209
